FAERS Safety Report 22264552 (Version 1)
Quarter: 2023Q2

REPORT INFORMATION
  Report Type: Spontaneous
  Country: US (occurrence: None)
  Receive Date: 20230427
  Receipt Date: 20230427
  Transmission Date: 20230721
  Serious: Yes (Other)
  Sender: FDA-Public Use
  Company Number: None

PATIENT
  Age: 56 Year
  Sex: Male
  Weight: 65.25 kg

DRUGS (1)
  1. CLINDAMYCIN PHOSPHATE [Suspect]
     Active Substance: CLINDAMYCIN PHOSPHATE
     Indication: Endodontic procedure
     Dates: start: 20230426, end: 20230427

REACTIONS (2)
  - Fatigue [None]
  - Nasopharyngitis [None]

NARRATIVE: CASE EVENT DATE: 20230427
